FAERS Safety Report 8070788-X (Version None)
Quarter: 2012Q1

REPORT INFORMATION
  Report Type: 
  Country: None (occurrence: None)
  Receive Date: 20120125
  Receipt Date: 20120116
  Transmission Date: 20120608
  Serious: Yes (Hospitalization)
  Sender: FDA-Public Use
  Company Number: SE-ASTRAZENECA-2012SE03149

PATIENT
  Age: 63 Year
  Sex: Female

DRUGS (12)
  1. ATARAX [Concomitant]
     Indication: DEPRESSION
  2. INOLAXOL [Concomitant]
  3. GABAPENTIN UNSPECIFIED [Concomitant]
  4. LASIX [Concomitant]
  5. SEROQUEL [Suspect]
     Indication: DEPRESSION
     Route: 048
  6. NOZINAN [Concomitant]
  7. OXAZEPAM [Concomitant]
  8. AKINETON [Concomitant]
     Indication: DEPRESSION
  9. LEVOTHYROXINE SODIUM [Concomitant]
  10. ZOPICLONE [Concomitant]
     Indication: DEPRESSION
  11. MIRTAZAPINE [Concomitant]
     Indication: DEPRESSION
  12. PAROXETINE HCL [Concomitant]
     Indication: DEPRESSION

REACTIONS (2)
  - CARDIAC FAILURE [None]
  - HEPATIC FAILURE [None]
